FAERS Safety Report 6548240-X (Version None)
Quarter: 2010Q1

REPORT INFORMATION
  Report Type: 
  Country: None (occurrence: None)
  Receive Date: 20100124
  Receipt Date: 20090415
  Transmission Date: 20100710
  Serious: No
  Sender: FDA-Public Use
  Company Number: US-ALLERGAN-0904033US

PATIENT
  Age: 64 Year
  Sex: Female
  Weight: 54.422 kg

DRUGS (10)
  1. RESTASIS [Suspect]
     Indication: DRY EYE
     Dosage: 1 GTT, BID
     Route: 050
     Dates: start: 20050101
  2. RESTASIS [Suspect]
     Dosage: 1 GTT, QID
     Dates: start: 20081001
  3. BIO TEARS [Concomitant]
     Indication: DRUG USE FOR UNKNOWN INDICATION
  4. SYNTHROID [Concomitant]
     Indication: HYPOTHYROIDISM
     Dosage: 0.75 MG, QD
     Route: 048
  5. NEXIUM [Concomitant]
     Indication: GASTROOESOPHAGEAL REFLUX DISEASE
     Dosage: 40 MG, QD
     Route: 048
  6. VYTORIN [Concomitant]
     Indication: HYPERCHOLESTEROLAEMIA
     Dosage: UNK, QD
     Route: 048
  7. ALENDRONATE SODIUM [Concomitant]
     Indication: OSTEOPOROSIS
     Dosage: 70 MG, Q WEEK
     Route: 048
  8. CITRACAL-D [Concomitant]
  9. CENTRUM SILVER [Concomitant]
     Dosage: UNK, QD
  10. ZANTAC [Concomitant]
     Indication: GASTROOESOPHAGEAL REFLUX DISEASE
     Dosage: 50 MG, QD
     Route: 048

REACTIONS (4)
  - DRY EYE [None]
  - EYE DISCHARGE [None]
  - FOREIGN BODY SENSATION IN EYES [None]
  - PHOTOPHOBIA [None]
